FAERS Safety Report 13826215 (Version 1)
Quarter: 2017Q3

REPORT INFORMATION
  Report Type: Spontaneous
  Country: US (occurrence: US)
  Receive Date: 20170802
  Receipt Date: 20170802
  Transmission Date: 20171127
  Serious: No
  Sender: FDA-Public Use
  Company Number: US-PERRIGO-16US021689

PATIENT
  Age: 2 Year
  Sex: Male
  Weight: 14.51 kg

DRUGS (2)
  1. CHILDRENS CETIRIZINE HYDROCHLORIDE ALLERGY [Suspect]
     Active Substance: CETIRIZINE HYDROCHLORIDE
     Indication: ARTHROPOD BITE
     Dosage: UNKNOWN, UNKNOWN
     Route: 048
     Dates: start: 2015, end: 2015
  2. CHILDRENS CETIRIZINE HYDROCHLORIDE ALLERGY [Suspect]
     Active Substance: CETIRIZINE HYDROCHLORIDE
     Dosage: UNKNOWN, SINGLE
     Route: 048
     Dates: start: 20161108, end: 20161108

REACTIONS (5)
  - Accidental exposure to product [Recovered/Resolved]
  - Accidental exposure to product by child [None]
  - Drug administered to patient of inappropriate age [Recovered/Resolved]
  - Expired product administered [Recovered/Resolved]
  - Off label use [Recovered/Resolved]

NARRATIVE: CASE EVENT DATE: 2015
